FAERS Safety Report 16233465 (Version 1)
Quarter: 2019Q2

REPORT INFORMATION
  Report Type: Spontaneous
  Country: US (occurrence: US)
  Receive Date: 20190424
  Receipt Date: 20190424
  Transmission Date: 20190711
  Serious: Yes (Hospitalization, Other)
  Sender: FDA-Public Use
  Company Number: US-UNITED THERAPEUTICS-UNT-2019-007056

PATIENT
  Age: 5 Year
  Sex: Female

DRUGS (2)
  1. UNITUXIN [Suspect]
     Active Substance: DINUTUXIMAB
     Indication: PRODUCT USED FOR UNKNOWN INDICATION
     Dosage: UNK
     Route: 041
     Dates: start: 20180922
  2. 13-CIS-RETINOIC ACID [Suspect]
     Active Substance: ISOTRETINOIN
     Indication: PRODUCT USED FOR UNKNOWN INDICATION
     Route: 065

REACTIONS (12)
  - Urinary retention [Unknown]
  - Pain [Unknown]
  - Hypokalaemia [Unknown]
  - Mood altered [Unknown]
  - Dehydration [Unknown]
  - Diarrhoea [Unknown]
  - Photophobia [Recovered/Resolved]
  - Blindness [Recovering/Resolving]
  - Mydriasis [Unknown]
  - Capillary leak syndrome [Unknown]
  - Bacteraemia [Unknown]
  - Pyrexia [Unknown]
